FAERS Safety Report 5525254-X (Version None)
Quarter: 2007Q4

REPORT INFORMATION
  Report Type: 
  Country: None (occurrence: None)
  Receive Date: 20071120
  Receipt Date: 20071114
  Transmission Date: 20080405
  Serious: Yes (Death)
  Sender: FDA-Public Use
  Company Number: 163-21880-07070406

PATIENT
  Age: 77 Year
  Sex: Male

DRUGS (1)
  1. REVLIMID [Suspect]
     Indication: MULTIPLE MYELOMA
     Dosage: 25 MG, QD 21 DAYS ON 7 DAYS OFF, ORAL
     Route: 048
     Dates: start: 20070316, end: 20070613

REACTIONS (2)
  - DISEASE PROGRESSION [None]
  - ISCHAEMIC CARDIOMYOPATHY [None]
